FAERS Safety Report 11430654 (Version 1)
Quarter: 2015Q3

REPORT INFORMATION
  Report Type: Report from Study
  Country: US (occurrence: US)
  Receive Date: 20150828
  Receipt Date: 20150828
  Transmission Date: 20151125
  Serious: No
  Sender: FDA-Public Use
  Company Number: PHEH2015US016241

PATIENT
  Sex: Male
  Weight: 113.4 kg

DRUGS (1)
  1. GLEEVEC [Suspect]
     Active Substance: IMATINIB MESYLATE
     Indication: HEPATIC CANCER
     Dosage: 30 MG, EVERY THREE WEEKS
     Route: 058

REACTIONS (5)
  - Off label use [Unknown]
  - Incorrect route of drug administration [Unknown]
  - Night sweats [Unknown]
  - Drug ineffective [Unknown]
  - Diarrhoea [Unknown]
